FAERS Safety Report 4707202-5 (Version None)
Quarter: 2005Q3

REPORT INFORMATION
  Report Type: 
  Country: None (occurrence: None)
  Receive Date: 20050706
  Receipt Date: 20050628
  Transmission Date: 20060218
  Serious: Yes (Other)
  Sender: FDA-Public Use
  Company Number: 200515411US

PATIENT
  Sex: Female
  Weight: 85.1 kg

DRUGS (4)
  1. ARAVA [Suspect]
     Indication: ARTHRITIS
     Dates: start: 20050428, end: 20050624
  2. ATENOLOL [Concomitant]
  3. HYDROCHLOROTHIAZIDE [Concomitant]
     Dosage: DOSE: 75/50
  4. KLOR-CON [Concomitant]

REACTIONS (3)
  - ABDOMINAL PAIN UPPER [None]
  - HEPATIC ENZYME INCREASED [None]
  - THROAT IRRITATION [None]
